FAERS Safety Report 10219582 (Version 1)
Quarter: 2014Q2

REPORT INFORMATION
  Report Type: Spontaneous
  Country: US (occurrence: None)
  Receive Date: 20140604
  Receipt Date: 20140604
  Transmission Date: 20141212
  Serious: Yes (Life-Threatening, Hospitalization)
  Sender: FDA-Public Use
  Company Number: None

PATIENT
  Age: 50 Year
  Sex: Female
  Weight: 58.6 kg

DRUGS (6)
  1. LEVOFLOXACIN [Suspect]
     Indication: SINUSITIS
     Route: 048
     Dates: start: 20140513, end: 20140513
  2. CIPROFLOXACIN [Concomitant]
  3. LEVAQUIN [Concomitant]
  4. LAMICTAL [Concomitant]
  5. LISINOPRIL/HCTZ [Concomitant]
  6. TOPROL-XL [Concomitant]

REACTIONS (6)
  - Anaphylactic reaction [None]
  - Vomiting [None]
  - Diarrhoea [None]
  - Wheezing [None]
  - Dyspnoea [None]
  - Hypotension [None]
